FAERS Safety Report 5543051-6 (Version None)
Quarter: 2007Q4

REPORT INFORMATION
  Report Type: 
  Country: None (occurrence: None)
  Receive Date: 20071210
  Receipt Date: 20071128
  Transmission Date: 20080405
  Serious: Yes (Other)
  Sender: FDA-Public Use
  Company Number: BE-PFIZER INC-2007101427

PATIENT
  Sex: Male

DRUGS (1)
  1. CHAMPIX [Suspect]
     Dates: start: 20070901, end: 20071116

REACTIONS (4)
  - BRADYCARDIA [None]
  - FATIGUE [None]
  - HYPOTENSION [None]
  - PERIPHERAL COLDNESS [None]
